FAERS Safety Report 8590652 (Version 2)
Quarter: 2013Q3

REPORT INFORMATION
  Report Type: Spontaneous
  Country: US (occurrence: US)
  Receive Date: 20120601
  Receipt Date: 20130809
  Transmission Date: 20140515
  Serious: Yes (Other)
  Sender: FDA-Public Use
  Company Number: US-ROCHE-1073518

PATIENT
  Age: 35 Year
  Sex: Female

DRUGS (1)
  1. ACCUTANE [Suspect]
     Indication: ACNE
     Route: 065
     Dates: start: 19941010, end: 1995

REACTIONS (7)
  - Inflammatory bowel disease [Unknown]
  - Colitis ulcerative [Unknown]
  - Colon cancer [Unknown]
  - Irritable bowel syndrome [Unknown]
  - Pancreatitis [Unknown]
  - Anxiety [Unknown]
  - Eczema [Unknown]
